FAERS Safety Report 6521154-7 (Version None)
Quarter: 2009Q4

REPORT INFORMATION
  Report Type: 
  Country: None (occurrence: None)
  Receive Date: 20091222
  Receipt Date: 20091208
  Transmission Date: 20100525
  Serious: No
  Sender: FDA-Public Use
  Company Number: 2009012073

PATIENT
  Sex: Female
  Weight: 61.2356 kg

DRUGS (8)
  1. FENTORA [Suspect]
     Indication: CHRONIC FATIGUE SYNDROME
     Dosage: (400 MCG, TABLETS), BU;  800 MCG (400 MCG,2 IN 1 D),BU; (200 MCG),BU; (800 MCG),BU
     Route: 002
  2. FENTORA [Suspect]
     Indication: FIBROMYALGIA
     Dosage: (400 MCG, TABLETS), BU;  800 MCG (400 MCG,2 IN 1 D),BU; (200 MCG),BU; (800 MCG),BU
     Route: 002
  3. FENTORA [Suspect]
     Indication: MIGRAINE
     Dosage: (400 MCG, TABLETS), BU;  800 MCG (400 MCG,2 IN 1 D),BU; (200 MCG),BU; (800 MCG),BU
     Route: 002
  4. FENTORA [Suspect]
     Indication: NECK PAIN
     Dosage: (400 MCG, TABLETS), BU;  800 MCG (400 MCG,2 IN 1 D),BU; (200 MCG),BU; (800 MCG),BU
     Route: 002
  5. KADIAN (MORPHINE SULFATE) (200 MILLIGRAM) [Concomitant]
  6. DURAGESIC (PARACETAMOL, ORPHENADRINE CITRATE) [Concomitant]
  7. OXYCONTIN (OXYC0D0NE HYDROCHLORIDE) (20 MILLIGRAM) [Concomitant]
  8. METHADONE (METHADONE) [Concomitant]

REACTIONS (3)
  - DRUG PRESCRIBING ERROR [None]
  - NO THERAPEUTIC RESPONSE [None]
  - PRODUCT QUALITY ISSUE [None]
